FAERS Safety Report 15678784 (Version 1)
Quarter: 2018Q4

REPORT INFORMATION
  Report Type: Spontaneous
  Country: US (occurrence: US)
  Receive Date: 20181202
  Receipt Date: 20181202
  Transmission Date: 20190205
  Serious: Yes (Other)
  Sender: FDA-Public Use
  Company Number: US-TOLMAR, INC.-TOLG20180680

PATIENT

DRUGS (7)
  1. ACYCLOVIR. [Suspect]
     Active Substance: ACYCLOVIR
     Indication: HERPES OPHTHALMIC
  2. CIDOFOVIR. [Suspect]
     Active Substance: CIDOFOVIR
     Indication: ORAL HERPES
     Dosage: UNKNOWN
     Route: 042
  3. VALACYCLOVIR [Suspect]
     Active Substance: VALACYCLOVIR HYDROCHLORIDE
     Indication: ANTIVIRAL PROPHYLAXIS
     Dosage: PER INTERNAL STANDARD OF CARE PRACTICES
     Route: 048
  4. FOSCARNET [Suspect]
     Active Substance: FOSCARNET
     Indication: ORAL HERPES
     Dosage: 40 MG/KG/DOSE
     Route: 042
  5. FOSCARNET [Suspect]
     Active Substance: FOSCARNET
     Indication: HERPES OPHTHALMIC
  6. CIDOFOVIR. [Suspect]
     Active Substance: CIDOFOVIR
     Indication: HERPES OPHTHALMIC
     Dosage: 1-3%
     Route: 061
  7. ACYCLOVIR. [Suspect]
     Active Substance: ACYCLOVIR
     Indication: ORAL HERPES
     Dosage: 5-10 MG/KG
     Route: 042

REACTIONS (2)
  - Acute kidney injury [Unknown]
  - Renal failure [Unknown]
